FAERS Safety Report 18071505 (Version 1)
Quarter: 2020Q3

REPORT INFORMATION
  Report Type: Spontaneous
  Country: NP (occurrence: NP)
  Receive Date: 20200727
  Receipt Date: 20200727
  Transmission Date: 20201103
  Serious: Yes (Hospitalization, Other)
  Sender: FDA-Public Use
  Company Number: NP-SUN PHARMACEUTICAL INDUSTRIES LTD-2020RR-254578

PATIENT
  Age: 10 Year
  Sex: Female

DRUGS (4)
  1. CEFIXIME. [Suspect]
     Active Substance: CEFIXIME
     Indication: COUGH
  2. CEFIXIME. [Suspect]
     Active Substance: CEFIXIME
     Indication: OROPHARYNGEAL PAIN
  3. PHENYTOIN. [Suspect]
     Active Substance: PHENYTOIN
     Indication: SEIZURE
     Dosage: 200 MILLIGRAM, AT NIGHT
     Route: 065
  4. CEFIXIME. [Suspect]
     Active Substance: CEFIXIME
     Indication: PYREXIA
     Dosage: UNK
     Route: 065

REACTIONS (2)
  - Stevens-Johnson syndrome [Recovering/Resolving]
  - Condition aggravated [Recovering/Resolving]
